FAERS Safety Report 6365272-5 (Version None)
Quarter: 2009Q3

REPORT INFORMATION
  Report Type: 
  Country: None (occurrence: None)
  Receive Date: 20090919
  Receipt Date: 20090807
  Transmission Date: 20100115
  Serious: No
  Sender: FDA-Public Use
  Company Number: US-ABBOTT-09P-163-0590258-00

PATIENT
  Sex: Female
  Weight: 57.658 kg

DRUGS (5)
  1. HUMIRA [Suspect]
     Indication: RHEUMATOID ARTHRITIS
     Route: 058
     Dates: start: 20090701
  2. UNKNOWN ANTIFUNGAL [Concomitant]
     Indication: TINEA PEDIS
     Route: 061
     Dates: start: 20090701
  3. ISOFLAVANOID [Concomitant]
     Indication: OESTROGEN REPLACEMENT THERAPY
     Route: 048
  4. METHOTREXATE [Concomitant]
     Indication: RHEUMATOID ARTHRITIS
     Route: 048
  5. IBUPROFEN [Concomitant]
     Indication: DRUG USE FOR UNKNOWN INDICATION
     Route: 048

REACTIONS (3)
  - ALOPECIA [None]
  - MYALGIA [None]
  - NIGHT SWEATS [None]
